FAERS Safety Report 23148028 (Version 1)
Quarter: 2023Q4

REPORT INFORMATION
  Report Type: Spontaneous
  Country: FR (occurrence: FR)
  Receive Date: 20231106
  Receipt Date: 20231106
  Transmission Date: 20240110
  Serious: Yes (Other)
  Sender: FDA-Public Use
  Company Number: FR-ROCHE-3409141

PATIENT
  Age: 56 Year
  Sex: Male

DRUGS (17)
  1. CISPLATIN [Suspect]
     Active Substance: CISPLATIN
     Indication: Diffuse large B-cell lymphoma stage II
     Dosage: 2 CYCLES OF SECOND-LINE TREATMENT
  2. ETOPOSIDE [Suspect]
     Active Substance: ETOPOSIDE
     Indication: Diffuse large B-cell lymphoma stage II
     Dates: start: 2020
  3. CYCLOPHOSPHAMIDE [Suspect]
     Active Substance: CYCLOPHOSPHAMIDE
     Indication: Diffuse large B-cell lymphoma stage II
     Dates: start: 20210519
  4. CYTARABINE [Suspect]
     Active Substance: CYTARABINE
     Indication: Diffuse large B-cell lymphoma stage II
     Dosage: 2 CYCLES OF SECOND-LINE TREATMENT
  5. DOXORUBICIN [Suspect]
     Active Substance: DOXORUBICIN
     Indication: Diffuse large B-cell lymphoma stage II
     Dosage: FIRST-LINE TREATMENT
     Dates: start: 2019
  6. FLUDARABINE [Suspect]
     Active Substance: FLUDARABINE PHOSPHATE
     Indication: Diffuse large B-cell lymphoma stage II
  7. VINCRISTINE [Suspect]
     Active Substance: VINCRISTINE
     Indication: Diffuse large B-cell lymphoma stage II
     Dosage: FIRST-LINE TREATMENT
     Dates: start: 2019
  8. PREDNISONE [Suspect]
     Active Substance: PREDNISONE
     Indication: Diffuse large B-cell lymphoma stage II
     Dosage: FIRST-LINE TREATMENT
     Dates: start: 2019
  9. RITUXIMAB [Suspect]
     Active Substance: RITUXIMAB
     Indication: Diffuse large B-cell lymphoma stage II
     Dosage: FIRST-LINE TREATMENT AND SECOND LINE THERAPY
     Dates: start: 2019
  10. DEXAMETHASONE [Suspect]
     Active Substance: DEXAMETHASONE
     Indication: Diffuse large B-cell lymphoma stage II
     Dosage: 2 CYCLES OF SECOND-LINE TREATMENT
  11. AXICABTAGENE CILOLEUCEL [Suspect]
     Active Substance: AXICABTAGENE CILOLEUCEL
     Indication: Diffuse large B-cell lymphoma stage II
     Dates: start: 20200505
  12. METHYLPREDNISOLONE [Suspect]
     Active Substance: METHYLPREDNISOLONE
     Indication: Diffuse large B-cell lymphoma stage II
     Dates: start: 2020
  13. HUMAN RED BLOOD CELL [Concomitant]
     Active Substance: HUMAN RED BLOOD CELL
     Dates: start: 2020
  14. TOCILIZUMAB [Concomitant]
     Active Substance: TOCILIZUMAB
     Indication: Cytokine release syndrome
     Dates: start: 2020
  15. CLOFARABINE [Concomitant]
     Active Substance: CLOFARABINE
     Dates: start: 2020
  16. CYTARABINE [Concomitant]
     Active Substance: CYTARABINE
     Dates: start: 2020
  17. CYCLOPHOSPHAMIDE [Suspect]
     Active Substance: CYCLOPHOSPHAMIDE
     Indication: Diffuse large B-cell lymphoma stage II
     Dosage: FIRST-LINE TREATMENT; AT DAYS -5 TO -3
     Dates: start: 2019

REACTIONS (2)
  - Myelodysplastic syndrome [Unknown]
  - Disease progression [Recovered/Resolved]

NARRATIVE: CASE EVENT DATE: 20200101
